FAERS Safety Report 5299410-2 (Version None)
Quarter: 2007Q2

REPORT INFORMATION
  Report Type: 
  Country: None (occurrence: None)
  Receive Date: 20070417
  Receipt Date: 20070413
  Transmission Date: 20071010
  Serious: Yes (Hospitalization, Other)
  Sender: FDA-Public Use
  Company Number: US-BRISTOL-MYERS SQUIBB COMPANY-13747597

PATIENT
  Age: 52 Year
  Sex: Male

DRUGS (6)
  1. CISPLATIN [Suspect]
     Indication: RECTAL CANCER
  2. ETOPOSIDE [Suspect]
     Indication: RECTAL CANCER
  3. LEUCOVORIN CALCIUM [Suspect]
     Indication: RECTAL CANCER
  4. IRINOTECAN HCL [Suspect]
     Indication: RECTAL CANCER
  5. FLUOROURACIL [Suspect]
     Indication: RECTAL CANCER
     Route: 042
  6. BEVACIZUMAB [Suspect]
     Indication: RECTAL CANCER

REACTIONS (8)
  - ANAEMIA [None]
  - DIARRHOEA [None]
  - FEBRILE NEUTROPENIA [None]
  - HYPERTENSION [None]
  - MALIGNANT NEOPLASM PROGRESSION [None]
  - PROTEINURIA [None]
  - REVERSIBLE POSTERIOR LEUKOENCEPHALOPATHY SYNDROME [None]
  - THROMBOCYTOPENIA [None]
